FAERS Safety Report 25007160 (Version 1)
Quarter: 2025Q1

REPORT INFORMATION
  Report Type: Spontaneous
  Country: CA (occurrence: CA)
  Receive Date: 20250225
  Receipt Date: 20250225
  Transmission Date: 20250408
  Serious: Yes (Other)
  Sender: CSL BEHRING
  Company Number: CA-BEH-2025196616

PATIENT
  Age: 66 Year
  Sex: Male
  Weight: 97 kg

DRUGS (4)
  1. HUMAN IMMUNOGLOBULIN G [Interacting]
     Active Substance: HUMAN IMMUNOGLOBULIN G
     Indication: Product used for unknown indication
     Route: 065
  2. RUXIENCE [Interacting]
     Active Substance: RITUXIMAB-PVVR
     Indication: Granulomatosis with polyangiitis
     Dosage: 500 MG, QD
     Route: 042
  3. RUXIENCE [Interacting]
     Active Substance: RITUXIMAB-PVVR
     Route: 042
  4. IRON [Concomitant]
     Active Substance: IRON
     Route: 065

REACTIONS (5)
  - Foot fracture [Not Recovered/Not Resolved]
  - Weight decreased [Not Recovered/Not Resolved]
  - Intentional product use issue [Not Recovered/Not Resolved]
  - Drug interaction [Not Recovered/Not Resolved]
  - Off label use [Not Recovered/Not Resolved]
